FAERS Safety Report 4283422-1 (Version None)
Quarter: 2004Q1

REPORT INFORMATION
  Report Type: 
  Country: None (occurrence: None)
  Receive Date: 20040115
  Receipt Date: 20031114
  Transmission Date: 20041129
  Serious: Yes (Hospitalization)
  Sender: FDA-Public Use
  Company Number: US-JNJFOC-20030801148

PATIENT
  Age: 49 Year
  Sex: Female

DRUGS (9)
  1. DOXIL [Suspect]
     Indication: OVARIAN CANCER
     Dosage: 56 MG, 1 IN 6 WEEK, INTRAVENOUS
     Route: 042
     Dates: start: 20030429, end: 20030723
  2. TAXOL [Suspect]
     Indication: OVARIAN CANCER
     Dosage: 175 MG/M2, 1 IN 3 WEEK, INTRAVENOUS
     Route: 042
     Dates: start: 20030429
  3. CARBOPLATIN [Concomitant]
     Indication: OVARIAN CANCER
     Dosage: AUC 5, EVERY 3 WEEKS
  4. TENORMIN [Concomitant]
  5. KYTRIL [Concomitant]
  6. ATIVAN [Concomitant]
  7. BENADRYL (DIPHENYDRAMINE HYDROCHLORIDE [Concomitant]
  8. PEPCID [Concomitant]
  9. PREMARIN [Concomitant]

REACTIONS (4)
  - DEHYDRATION [None]
  - PAIN [None]
  - PHARYNGITIS [None]
  - STOMATITIS [None]
